FAERS Safety Report 5387191-3 (Version None)
Quarter: 2007Q3

REPORT INFORMATION
  Report Type: 
  Country: None (occurrence: None)
  Receive Date: 20070711
  Receipt Date: 20070706
  Transmission Date: 20080115
  Serious: Yes (Death, Hospitalization)
  Sender: FDA-Public Use
  Company Number: 163-21880-07060476

PATIENT
  Age: 94 Year
  Sex: Male

DRUGS (13)
  1. REVLIMID [Suspect]
     Indication: MYELODYSPLASTIC SYNDROME
     Dosage: 2.5 MG, 1 IN 1 D, ORAL
     Route: 048
     Dates: start: 20061101, end: 20070601
  2. COUMADIN [Concomitant]
  3. LOPRESSOR [Suspect]
  4. AMIODARONE HCL [Concomitant]
  5. LASIX [Concomitant]
  6. SYNTHROID                           (LEVOXYL) (LEVOTHYROXINE SODIUM) [Concomitant]
  7. FLOMAX [Concomitant]
  8. SIMVASTATIN [Concomitant]
  9. ASPIRIN [Concomitant]
  10. CALCIUM                 (CALCIUM) [Concomitant]
  11. MULTIVITAMIN [Concomitant]
  12. ASCORBIC ACID [Concomitant]
  13. VITAMIN B12 [Concomitant]

REACTIONS (4)
  - FALL [None]
  - INTERNATIONAL NORMALISED RATIO INCREASED [None]
  - MYOCARDIAL INFARCTION [None]
  - PAIN [None]
